FAERS Safety Report 25009672 (Version 2)
Quarter: 2025Q1

REPORT INFORMATION
  Report Type: Spontaneous
  Country: ES (occurrence: ES)
  Receive Date: 20250225
  Receipt Date: 20250304
  Transmission Date: 20250408
  Serious: Yes (Other)
  Sender: ROCHE
  Company Number: ES-ROCHE-10000209441

PATIENT
  Age: 30 Year
  Sex: Female

DRUGS (1)
  1. OCREVUS [Suspect]
     Active Substance: OCRELIZUMAB
     Indication: Relapsing-remitting multiple sclerosis
     Route: 065
     Dates: start: 202207

REACTIONS (4)
  - Myelofibrosis [Unknown]
  - Diarrhoea [Unknown]
  - Neutropenia [Recovered/Resolved]
  - Maternal exposure before pregnancy [Unknown]
